FAERS Safety Report 10223458 (Version 2)
Quarter: 2014Q2

REPORT INFORMATION
  Report Type: Spontaneous
  Country: US (occurrence: US)
  Receive Date: 20140609
  Receipt Date: 20140609
  Transmission Date: 20141212
  Serious: No
  Sender: FDA-Public Use
  Company Number: US-DRREDDYS-USA/USA/13/0034759

PATIENT
  Age: 81 Year
  Sex: Male

DRUGS (5)
  1. FEXOFENADINE HCL  OTC [Suspect]
     Indication: SEASONAL ALLERGY
     Route: 048
     Dates: start: 20130923
  2. FEXOFENADINE HCL  OTC [Suspect]
     Indication: NASAL CONGESTION
  3. SIMVASTATIN 20 MG [Concomitant]
     Indication: BLOOD CHOLESTEROL INCREASED
     Route: 065
  4. CLONAZEPAM [Concomitant]
     Indication: SPONDYLITIS
     Dosage: AT BEDTIME
     Route: 065
  5. DOXAZOSIN [Concomitant]
     Indication: HYPERTENSION
     Dosage: 2 MG AT BEDTIME
     Route: 065

REACTIONS (3)
  - Insomnia [Unknown]
  - Drug ineffective [Unknown]
  - Product quality issue [Unknown]
